FAERS Safety Report 5000872-6 (Version None)
Quarter: 2006Q2

REPORT INFORMATION
  Report Type: 
  Country: None (occurrence: None)
  Receive Date: 20060512
  Receipt Date: 20050329
  Transmission Date: 20061013
  Serious: No
  Sender: FDA-Public Use
  Company Number: US-GLAXOSMITHKLINE-A0551752A

PATIENT
  Age: 54 Year
  Sex: Female

DRUGS (3)
  1. RELAFEN [Suspect]
     Indication: OSTEOARTHRITIS
     Dosage: 1G PER DAY
     Route: 048
     Dates: start: 20050201, end: 20050301
  2. ESTROGENS SOL/INJ [Concomitant]
  3. HYDROCHLOROTHIAZIDE [Concomitant]

REACTIONS (1)
  - TINNITUS [None]
